FAERS Safety Report 4935828-2 (Version None)
Quarter: 2006Q1

REPORT INFORMATION
  Report Type: 
  Country: None (occurrence: None)
  Receive Date: 20060302
  Receipt Date: 20060210
  Transmission Date: 20060701
  Serious: Yes (Hospitalization, Other)
  Sender: FDA-Public Use
  Company Number: US_0509122410

PATIENT
  Age: 42 Year
  Sex: Female
  Weight: 120.2 kg

DRUGS (2)
  1. ZYPREXA [Suspect]
     Dosage: ORAL
     Route: 048
  2. INSULIN [Concomitant]

REACTIONS (7)
  - DIABETES MELLITUS [None]
  - FALL [None]
  - HEAD INJURY [None]
  - HYPERGLYCAEMIA [None]
  - MENORRHAGIA [None]
  - SYNCOPE [None]
  - UTERINE POLYP [None]
